FAERS Safety Report 5221302-5 (Version None)
Quarter: 2007Q1

REPORT INFORMATION
  Report Type: 
  Country: None (occurrence: None)
  Receive Date: 20070126
  Receipt Date: 20070116
  Transmission Date: 20070707
  Serious: Yes (Other)
  Sender: FDA-Public Use
  Company Number: GB-PFIZER INC-2006145449

PATIENT
  Sex: Male

DRUGS (14)
  1. LYRICA [Suspect]
     Indication: PHANTOM PAIN
     Route: 048
  2. TRIBULUS [Suspect]
     Indication: SEXUAL DYSFUNCTION
     Route: 048
  3. TRIBULUS [Suspect]
     Indication: ANOREXIA
  4. ALL OTHER THERAPEUTIC PRODUCTS [Concomitant]
  5. FORMOTEROL W/BUDESONIDE [Concomitant]
     Route: 055
  6. IBUPROFEN [Concomitant]
     Route: 048
     Dates: start: 20030808
  7. ZOPICLONE [Concomitant]
     Route: 048
     Dates: start: 20030916
  8. AMITRIPTYLINE HCL [Concomitant]
     Route: 048
     Dates: start: 20040622
  9. PROTEIN SUPPLEMENTS [Concomitant]
  10. ASCORBIC ACID [Concomitant]
  11. GLUCOSAMINE [Concomitant]
  12. EVENING PRIMROSE OIL [Concomitant]
  13. COD-LIVER OIL [Concomitant]
  14. VITAMIN CAP [Concomitant]

REACTIONS (3)
  - BLOOD LUTEINISING HORMONE DECREASED [None]
  - BLOOD TESTOSTERONE ABNORMAL [None]
  - HORMONE LEVEL ABNORMAL [None]
